FAERS Safety Report 22856698 (Version 2)
Quarter: 2023Q4

REPORT INFORMATION
  Report Type: Spontaneous
  Country: US (occurrence: US)
  Receive Date: 20230823
  Receipt Date: 20231026
  Transmission Date: 20240110
  Serious: Yes (Death, Hospitalization, Other)
  Sender: FDA-Public Use
  Company Number: US-ABBVIE-5379074

PATIENT
  Sex: Female
  Weight: 40.37 kg

DRUGS (1)
  1. IMBRUVICA [Suspect]
     Active Substance: IBRUTINIB
     Indication: Product used for unknown indication
     Route: 048
     Dates: start: 20230308

REACTIONS (7)
  - Intestinal ischaemia [Fatal]
  - Pneumonia [Fatal]
  - Adenocarcinoma gastric [Fatal]
  - Diarrhoea [Unknown]
  - Septic shock [Fatal]
  - Benign lymph node neoplasm [Unknown]
  - Hospitalisation [Unknown]

NARRATIVE: CASE EVENT DATE: 20230101
